FAERS Safety Report 9818489 (Version 1)
Quarter: 2014Q1

REPORT INFORMATION
  Report Type: Spontaneous
  Country: US (occurrence: US)
  Receive Date: 20140115
  Receipt Date: 20140115
  Transmission Date: 20141002
  Serious: No
  Sender: FDA-Public Use
  Company Number: US-PFIZER INC-2014012626

PATIENT
  Age: 82 Year
  Sex: Male

DRUGS (1)
  1. XANAX [Suspect]
     Dosage: 0.25 MG, 3X/DAY
     Route: 048

REACTIONS (1)
  - Constipation [Unknown]
